FAERS Safety Report 14784943 (Version 1)
Quarter: 2018Q2

REPORT INFORMATION
  Report Type: Spontaneous
  Country: CN (occurrence: CN)
  Receive Date: 20180420
  Receipt Date: 20180420
  Transmission Date: 20180711
  Serious: Yes (Death, Other)
  Sender: FDA-Public Use
  Company Number: CN-OTSUKA-2018_009574

PATIENT
  Age: 42 Year
  Sex: Male

DRUGS (18)
  1. 2-CDA [Suspect]
     Active Substance: CLADRIBINE
     Indication: STEM CELL TRANSPLANT
  2. ARA-C [Suspect]
     Active Substance: CYTARABINE
     Indication: ACUTE MYELOID LEUKAEMIA
     Dosage: 2 G/M2, (IN 4-HOUR INFUSIONS, STARTED 2 HOURS AFTER 2-CDA, FOR 5 CONSECUTIVE DAYS)
     Route: 065
  3. ARA-C [Suspect]
     Active Substance: CYTARABINE
     Indication: STEM CELL TRANSPLANT
  4. MITOXANTRONE [Suspect]
     Active Substance: MITOXANTRONE HYDROCHLORIDE
     Indication: ACUTE MYELOID LEUKAEMIA
     Dosage: 10 MG, UNK
     Route: 065
  5. BUSULFEX [Suspect]
     Active Substance: BUSULFAN
     Indication: ACUTE MYELOID LEUKAEMIA
     Dosage: 1 MG/KG, UNK (Q6H -7D TO -4D)
     Route: 065
  6. BUSULFEX [Suspect]
     Active Substance: BUSULFAN
     Indication: STEM CELL TRANSPLANT
     Dosage: UNK, (12 TO 16 MG/KG)
     Route: 065
  7. CYCLOPHOSPHAMIDE. [Suspect]
     Active Substance: CYCLOPHOSPHAMIDE
     Indication: ACUTE MYELOID LEUKAEMIA
     Dosage: 60 MG/KG, UNK (-3D TO -2D)
     Route: 065
  8. G-CSF [Suspect]
     Active Substance: GRANULOCYTE COLONY-STIMULATING FACTOR NOS
     Indication: ACUTE MYELOID LEUKAEMIA
     Dosage: 300 ?G, UNK (FOR 6 DAYS, STARTED 24 HOURS)
     Route: 058
  9. 2-CDA [Suspect]
     Active Substance: CLADRIBINE
     Indication: ACUTE MYELOID LEUKAEMIA
     Dosage: 5 MG/M2, UNK ((IN 2-HOUR INTRAVENOUS INFUSIONS, FOR 5 CONSECUTIVE DAYS)
     Route: 042
  10. G-CSF [Suspect]
     Active Substance: GRANULOCYTE COLONY-STIMULATING FACTOR NOS
     Indication: STEM CELL TRANSPLANT
  11. CYCLOPHOSPHAMIDE. [Suspect]
     Active Substance: CYCLOPHOSPHAMIDE
     Indication: STEM CELL TRANSPLANT
  12. MITOXANTRONE [Suspect]
     Active Substance: MITOXANTRONE HYDROCHLORIDE
     Indication: BONE MARROW FAILURE
  13. BUSULFEX [Suspect]
     Active Substance: BUSULFAN
     Indication: BONE MARROW FAILURE
  14. MITOXANTRONE [Suspect]
     Active Substance: MITOXANTRONE HYDROCHLORIDE
     Indication: STEM CELL TRANSPLANT
  15. G-CSF [Suspect]
     Active Substance: GRANULOCYTE COLONY-STIMULATING FACTOR NOS
     Indication: BONE MARROW FAILURE
  16. CYCLOPHOSPHAMIDE. [Suspect]
     Active Substance: CYCLOPHOSPHAMIDE
     Indication: BONE MARROW FAILURE
  17. 2-CDA [Suspect]
     Active Substance: CLADRIBINE
     Indication: BONE MARROW FAILURE
  18. ARA-C [Suspect]
     Active Substance: CYTARABINE
     Indication: BONE MARROW FAILURE

REACTIONS (4)
  - Disseminated intravascular coagulation [Fatal]
  - Product use in unapproved indication [Unknown]
  - Left ventricular failure [Fatal]
  - Infection [Fatal]
